FAERS Safety Report 21520405 (Version 1)
Quarter: 2022Q4

REPORT INFORMATION
  Report Type: Spontaneous
  Country: JP (occurrence: JP)
  Receive Date: 20221028
  Receipt Date: 20221028
  Transmission Date: 20230112
  Serious: Yes (Death, Hospitalization, Other)
  Sender: FDA-Public Use
  Company Number: JP-BRISTOL-MYERS SQUIBB COMPANY-2022-124353

PATIENT
  Age: 87 Year
  Sex: Female
  Weight: 79.9 kg

DRUGS (8)
  1. ELIQUIS [Suspect]
     Active Substance: APIXABAN
     Indication: Deep vein thrombosis
     Dosage: 5 MG, 2X/DAY
     Route: 048
     Dates: start: 20220711, end: 20220728
  2. SPIRONOLACTONE [Suspect]
     Active Substance: SPIRONOLACTONE
     Indication: Oedema
     Dosage: 50 MG, 1X/DAY
     Route: 048
     Dates: start: 20220627
  3. SODIUM FERROUS CITRATE [Suspect]
     Active Substance: SODIUM FERROUS CITRATE
     Indication: Anaemia
     Dosage: 2 G, 1X/DAY
     Route: 048
     Dates: start: 20220624
  4. FAMOTIDINE [Suspect]
     Active Substance: FAMOTIDINE
     Dosage: 20 MG, 1X/DAY
     Route: 048
     Dates: start: 20220625
  5. FUROSEMIDE [Suspect]
     Active Substance: FUROSEMIDE
     Indication: Oedema
     Dosage: 20 MG, 1X/DAY
     Route: 048
     Dates: start: 20220627
  6. FOLIC ACID [Suspect]
     Active Substance: FOLIC ACID
     Dosage: 1 DF
     Route: 048
     Dates: start: 20220621
  7. AMPICILLIN\CLOXACILLIN [Suspect]
     Active Substance: AMPICILLIN\CLOXACILLIN
     Indication: Infection
     Dosage: 2 G
     Route: 041
     Dates: start: 20220617
  8. LEVETIRACETAM DALLAS [Concomitant]
     Dosage: UNK
     Route: 048

REACTIONS (2)
  - Sepsis [Fatal]
  - Toxic epidermal necrolysis [Unknown]

NARRATIVE: CASE EVENT DATE: 20220722
